FAERS Safety Report 4375278-3 (Version None)
Quarter: 2004Q2

REPORT INFORMATION
  Report Type: 
  Country: None (occurrence: None)
  Receive Date: 20040603
  Receipt Date: 20040601
  Transmission Date: 20050107
  Serious: Yes (Death, Hospitalization)
  Sender: FDA-Public Use
  Company Number: 200410101BFR

PATIENT
  Age: 82 Year
  Sex: Female

DRUGS (13)
  1. IZILOX (MOXIFLOXACIN HYDROCHLORIDE) [Suspect]
     Indication: BRONCHOPNEUMONIA
     Dosage: 400 MG, TOTAL DAILY, ORAL
     Route: 048
     Dates: start: 20040217
  2. IZILOX (MOXIFLOXACIN HYDROCHLORIDE) [Suspect]
     Indication: PURULENT DISCHARGE
     Dosage: 400 MG, TOTAL DAILY, ORAL
     Route: 048
     Dates: start: 20040217
  3. ZECLAR [Concomitant]
  4. MODOPAR [Concomitant]
  5. COMTAN [Concomitant]
  6. ACETAMINOPHEN [Concomitant]
  7. FOSAMAX [Concomitant]
  8. FIXICAL VITAMINE D3 [Concomitant]
  9. BRONCHOKOD [Concomitant]
  10. CELESTENE [Concomitant]
  11. KARDEGIC [Concomitant]
  12. TRAMADOL HCL [Concomitant]
  13. KETOPROFEN [Concomitant]

REACTIONS (39)
  - AORTIC STENOSIS [None]
  - ASTHENIA [None]
  - BLOOD IMMUNOGLOBULIN M INCREASED [None]
  - BLOOD LACTATE DEHYDROGENASE INCREASED [None]
  - BLOOD UREA INCREASED [None]
  - CARDIAC DISORDER [None]
  - CARDIAC MURMUR [None]
  - CIRCULATORY COLLAPSE [None]
  - COLD AGGLUTININS POSITIVE [None]
  - CONDITION AGGRAVATED [None]
  - COOMBS DIRECT TEST POSITIVE [None]
  - CYANOSIS [None]
  - DEPRESSED LEVEL OF CONSCIOUSNESS [None]
  - GENERAL PHYSICAL HEALTH DETERIORATION [None]
  - HAEMODYNAMIC INSTABILITY [None]
  - HAEMOGLOBINURIA [None]
  - HAEMOLYTIC ANAEMIA [None]
  - HAPTOGLOBIN DECREASED [None]
  - HEART RATE DECREASED [None]
  - HYPERBILIRUBINAEMIA [None]
  - HYPOXIA [None]
  - INTRAVASCULAR HAEMOLYSIS [None]
  - JAUNDICE [None]
  - JUGULAR VEIN DISTENSION [None]
  - LEUKOCYTOSIS [None]
  - LUNG INFECTION [None]
  - MONOCLONAL IMMUNOGLOBULIN PRESENT [None]
  - MYCOPLASMA INFECTION [None]
  - MYOCARDIAL INFARCTION [None]
  - PALLOR [None]
  - PLATELET COUNT INCREASED [None]
  - PROSTRATION [None]
  - PULMONARY HYPERTENSION [None]
  - RESPIRATORY FAILURE [None]
  - RETICULOCYTOSIS [None]
  - TACHYCARDIA [None]
  - TACHYPNOEA [None]
  - VENTRICULAR HYPERTROPHY [None]
  - WHITE BLOOD CELL COUNT INCREASED [None]
